FAERS Safety Report 9751705 (Version 1)
Quarter: 2013Q4

REPORT INFORMATION
  Report Type: Spontaneous
  Country: US (occurrence: US)
  Receive Date: 20131213
  Receipt Date: 20131213
  Transmission Date: 20140711
  Serious: No
  Sender: FDA-Public Use
  Company Number: US-009507513-1312USA004723

PATIENT
  Age: 82 Year
  Sex: Male

DRUGS (20)
  1. DULERA [Suspect]
     Indication: ASTHMA
     Dosage: 2 PUFFS TAKEN TWICE DAILY
     Route: 055
     Dates: start: 20131121, end: 20131123
  2. AMLODIPINE [Concomitant]
     Dosage: 2.5 MG, QD
  3. ASPIRIN [Concomitant]
     Dosage: 81 MG, QD
  4. ATORVASTATIN [Concomitant]
     Dosage: 10 MG, QD
  5. AVODART [Concomitant]
     Dosage: 0.5 MG, QD
  6. BENZONATATE [Concomitant]
     Dosage: 20 MG TAKEN 1 CAPSULE 3 TIMES DAILY AS NEEDED
  7. CYANOCOBALAMIN [Concomitant]
     Dosage: 1000 MCG TAKEN VIA INJECTION 1 ML ONCE MONTHLY
  8. DOXAZOSIN MESYLATE [Concomitant]
     Dosage: 8 MG, QD
  9. FLUTICASONE [Concomitant]
     Dosage: 2 SPRAYS IN EACH NOSTRIL ONCE DAILY
     Route: 055
  10. FOLIC ACID [Concomitant]
     Dosage: 1 MG, QD
  11. GABAPENTIN [Concomitant]
     Dosage: 600 MG, TID
  12. HYDROCHLOROTHIAZIDE [Concomitant]
     Dosage: 12.5 MG, TIW
  13. JANUVIA [Concomitant]
     Dosage: 50 MG, QD
  14. MORPHINE SULFATE [Concomitant]
     Dosage: 20 MG, BID
  15. PANTOPRAZOLE [Concomitant]
     Dosage: 40 MG, QD
  16. POLYETHYLENE GLYCOL [Concomitant]
     Dosage: 17 G, QD
  17. TRILIPIX [Concomitant]
     Dosage: 135 MG, QD
  18. VITAMIN D (UNSPECIFIED) [Concomitant]
     Dosage: 1000 UNITS TAKEN ONCE DAILY
  19. XOPENEX [Concomitant]
     Dosage: UNK, PRN
  20. ZOLPIDEM TARTRATE [Concomitant]
     Dosage: 10 MG, HS

REACTIONS (3)
  - Swelling face [Recovered/Resolved]
  - Oropharyngeal pain [Recovered/Resolved]
  - Palpitations [Recovered/Resolved]
